FAERS Safety Report 6487186-2 (Version None)
Quarter: 2009Q4

REPORT INFORMATION
  Report Type: 
  Country: None (occurrence: None)
  Receive Date: 20091209
  Receipt Date: 20091209
  Transmission Date: 20100525
  Serious: Yes (Hospitalization)
  Sender: FDA-Public Use
  Company Number: None

PATIENT
  Sex: Female
  Weight: 55 kg

DRUGS (14)
  1. TARCEVA [Suspect]
     Indication: NON-SMALL CELL LUNG CANCER
     Dosage: 150 MG DAILY ORAL
     Route: 048
     Dates: start: 20090729, end: 20091024
  2. ZOSYN [Concomitant]
  3. LOVENOX [Concomitant]
  4. FLUTICASONE [Concomitant]
  5. COMBIVENT [Concomitant]
  6. OXYCONTIN [Concomitant]
  7. OXYCODONE [Concomitant]
  8. DILAUDID [Concomitant]
  9. DILAUDID [Concomitant]
  10. ATIVAN [Concomitant]
  11. COLACE [Concomitant]
  12. SENNA [Concomitant]
  13. POLYETHYLENE GLYCOL [Concomitant]
  14. NICOTINE [Concomitant]

REACTIONS (9)
  - BRADYCARDIA [None]
  - HYPOTENSION [None]
  - LEFT VENTRICULAR DYSFUNCTION [None]
  - PLEURODESIS [None]
  - PNEUMONIA [None]
  - RESPIRATORY FAILURE [None]
  - RIGHT VENTRICULAR SYSTOLIC PRESSURE DECREASED [None]
  - SINUS TACHYCARDIA [None]
  - UNRESPONSIVE TO STIMULI [None]
